FAERS Safety Report 11181997 (Version 2)
Quarter: 2015Q2

REPORT INFORMATION
  Report Type: Spontaneous
  Country: CA (occurrence: CA)
  Receive Date: 20150611
  Receipt Date: 20150625
  Transmission Date: 20150821
  Serious: Yes (Other)
  Sender: FDA-Public Use
  Company Number: CA-GE HEALTHCARE MEDICAL DIAGNOSTICS-VISP-PR-1505S-0208

PATIENT
  Age: 78 Year
  Sex: Female
  Weight: 95.34 kg

DRUGS (3)
  1. VISIPAQUE [Suspect]
     Active Substance: IODIXANOL
     Indication: DIAGNOSTIC PROCEDURE
  2. METFORMIN [Concomitant]
     Active Substance: METFORMIN HYDROCHLORIDE
     Indication: TYPE 2 DIABETES MELLITUS
  3. VISIPAQUE [Suspect]
     Active Substance: IODIXANOL
     Indication: METASTASIS
     Route: 042
     Dates: start: 20150527, end: 20150527

REACTIONS (4)
  - Nausea [Recovered/Resolved]
  - Anaphylactic shock [Recovered/Resolved]
  - Dysphonia [Recovered/Resolved]
  - Loss of consciousness [Recovered/Resolved]

NARRATIVE: CASE EVENT DATE: 20150527
